FAERS Safety Report 15390342 (Version 1)
Quarter: 2018Q3

REPORT INFORMATION
  Report Type: Spontaneous
  Country: US (occurrence: US)
  Receive Date: 20180908
  Receipt Date: 20180908
  Transmission Date: 20181010
  Serious: No
  Sender: FDA-Public Use
  Company Number: None

PATIENT
  Age: 68 Year
  Sex: Female
  Weight: 65.25 kg

DRUGS (2)
  1. CHAPSTICK SUN DEFENSE (LIP STICK) [Suspect]
     Active Substance: OCTINOXATE\OCTISALATE\OCTOCRYLENE\OXYBENZONE\PETROLATUM
     Indication: CHAPPED LIPS
     Dosage: ?          QUANTITY:1 LIP STICK;?
     Route: 061
     Dates: start: 20180827, end: 20180903
  2. 81 MG ASPIRIN [Concomitant]
     Active Substance: ASPIRIN

REACTIONS (4)
  - Perioral dermatitis [None]
  - Product formulation issue [None]
  - Skin exfoliation [None]
  - Allergic reaction to excipient [None]

NARRATIVE: CASE EVENT DATE: 20180827
